FAERS Safety Report 10246204 (Version 2)
Quarter: 2014Q3

REPORT INFORMATION
  Report Type: Spontaneous
  Country: US (occurrence: US)
  Receive Date: 20140619
  Receipt Date: 20140801
  Transmission Date: 20150326
  Serious: Yes (Other)
  Sender: FDA-Public Use
  Company Number: US-ASTRAZENECA-2014SE40832

PATIENT
  Sex: Female

DRUGS (1)
  1. SYMBICORT [Suspect]
     Active Substance: BUDESONIDE\FORMOTEROL FUMARATE DIHYDRATE
     Dosage: 160/4.5 MCG, 2 PUFFS TWO TIMES A DAY
     Route: 055

REACTIONS (3)
  - Device misuse [Unknown]
  - Limb injury [Unknown]
  - Haematoma [Unknown]

NARRATIVE: CASE EVENT DATE: 2014
